FAERS Safety Report 8334984-6 (Version None)
Quarter: 2012Q2

REPORT INFORMATION
  Report Type: 
  Country: None (occurrence: None)
  Receive Date: 20120503
  Receipt Date: 20120501
  Transmission Date: 20120825
  Serious: Yes (Hospitalization)
  Sender: FDA-Public Use
  Company Number: US-JNJFOC-20120302717

PATIENT
  Sex: Male

DRUGS (7)
  1. MIRTAZAPINE [Concomitant]
     Dosage: 30 MG 2 AT HOUR OF SLEEP
     Route: 048
  2. INVEGA SUSTENNA [Suspect]
     Indication: BIPOLAR DISORDER
     Route: 030
     Dates: start: 20120214
  3. RISPERIDONE [Concomitant]
     Dosage: 1 MG 4 AT HOUR OF SLEEP
     Route: 048
  4. INVEGA SUSTENNA [Suspect]
     Indication: MAJOR DEPRESSION
     Route: 030
     Dates: start: 20120214
  5. LAMICTAL [Concomitant]
     Route: 048
  6. XANAX XR [Concomitant]
     Route: 048
  7. COGENTIN [Concomitant]
     Route: 048

REACTIONS (2)
  - CONVULSION [None]
  - CONVERSION DISORDER [None]
